FAERS Safety Report 10540175 (Version 1)
Quarter: 2014Q4

REPORT INFORMATION
  Report Type: Spontaneous
  Country: FR (occurrence: None)
  Receive Date: 20141022
  Receipt Date: 20141022
  Transmission Date: 20150529
  Serious: Yes (Hospitalization)
  Sender: FDA-Public Use
  Company Number: 2581174

PATIENT
  Age: 83 Year
  Sex: Male

DRUGS (3)
  1. GEMCITABINE [Suspect]
     Active Substance: GEMCITABINE\GEMCITABINE HYDROCHLORIDE
     Indication: TRANSITIONAL CELL CARCINOMA
     Dosage: CYCLICAL
     Route: 042
     Dates: start: 20130114, end: 201306
  2. XGEVA [Suspect]
     Active Substance: DENOSUMAB
     Indication: PRODUCT USED FOR UNKNOWN INDICATION
     Dosage: SINE AROUND 1 YEAR
     Route: 058
  3. CARBOPLATIN. [Suspect]
     Active Substance: CARBOPLATIN
     Indication: TRANSITIONAL CELL CARCINOMA
     Dosage: CYCLICAL
     Route: 042
     Dates: start: 20130114, end: 201306

REACTIONS (1)
  - Refractory anaemia with an excess of blasts [None]

NARRATIVE: CASE EVENT DATE: 20140905
